FAERS Safety Report 4950393-1 (Version None)
Quarter: 2006Q1

REPORT INFORMATION
  Report Type: 
  Country: None (occurrence: None)
  Receive Date: 20060322
  Receipt Date: 20060316
  Transmission Date: 20060701
  Serious: Yes (Hospitalization)
  Sender: FDA-Public Use
  Company Number: PHBS2006HR04108

PATIENT
  Age: 74 Year
  Sex: Female
  Weight: 86 kg

DRUGS (6)
  1. CORDERON [Concomitant]
  2. LACIPIL [Concomitant]
  3. MONOPRIL [Concomitant]
  4. FURSEMID [Concomitant]
  5. TINIDIL [Concomitant]
  6. LESCOL XL [Suspect]
     Indication: DYSLIPIDAEMIA
     Dosage: 80 MG/DAY
     Route: 048
     Dates: start: 20060217

REACTIONS (1)
  - CORONARY ARTERY RESTENOSIS [None]
